FAERS Safety Report 23662125 (Version 1)
Quarter: 2024Q1

REPORT INFORMATION
  Report Type: Spontaneous
  Country: CN (occurrence: CN)
  Receive Date: 20240322
  Receipt Date: 20240322
  Transmission Date: 20240410
  Serious: Yes (Hospitalization)
  Sender: FDA-Public Use
  Company Number: CN-ROCHE-3528786

PATIENT
  Age: 49 Year
  Sex: Female
  Weight: 51 kg

DRUGS (5)
  1. XELODA [Suspect]
     Active Substance: CAPECITABINE
     Indication: Colon cancer
     Dosage: FREQ: BID. APPROVAL NO. GYZZ H20073024
     Route: 048
     Dates: start: 20240301, end: 20240305
  2. XELODA [Suspect]
     Active Substance: CAPECITABINE
     Dosage: FREQ: BID
     Route: 048
     Dates: start: 20240308, end: 20240311
  3. BEVACIZUMAB [Suspect]
     Active Substance: BEVACIZUMAB
     Indication: Colon cancer
     Dosage: APPROVAL NO. GYZZ S20233105
     Route: 065
     Dates: start: 20240301, end: 20240301
  4. IRINOTECAN HYDROCHLORIDE [Suspect]
     Active Substance: IRINOTECAN HYDROCHLORIDE
     Indication: Colon cancer
     Dosage: 150 MG 1 TIME EVERY 8 DAYS. ROA: IV DRIP.  APPROVAL NO. GYZZ H201431277
     Route: 041
     Dates: start: 20240301, end: 20240308
  5. SODIUM CHLORIDE [Concomitant]
     Active Substance: SODIUM CHLORIDE
     Dosage: APPROVAL NO. GYZZ H34021875
     Dates: start: 20240301, end: 20240308

REACTIONS (2)
  - Myelosuppression [Recovering/Resolving]
  - Gastrointestinal disorder [Recovered/Resolved]

NARRATIVE: CASE EVENT DATE: 20240302
